FAERS Safety Report 21003728 (Version 1)
Quarter: 2022Q2

REPORT INFORMATION
  Report Type: Spontaneous
  Country: US (occurrence: None)
  Receive Date: 20220623
  Receipt Date: 20220623
  Transmission Date: 20220721
  Serious: Yes (Hospitalization)
  Sender: FDA-Public Use
  Company Number: None

PATIENT
  Age: 27 Year
  Sex: Female
  Weight: 61.2 kg

DRUGS (1)
  1. MODAFINIL [Suspect]
     Active Substance: MODAFINIL
     Indication: Product used for unknown indication
     Dosage: FREQUENCY : TWICE A DAY;?
     Route: 048
     Dates: start: 20220602, end: 20220615

REACTIONS (1)
  - Stevens-Johnson syndrome [None]

NARRATIVE: CASE EVENT DATE: 20220616
